FAERS Safety Report 19013005 (Version 1)
Quarter: 2021Q1

REPORT INFORMATION
  Report Type: Spontaneous
  Country: US (occurrence: US)
  Receive Date: 20210316
  Receipt Date: 20210316
  Transmission Date: 20210420
  Serious: Yes (Other)
  Sender: FDA-Public Use
  Company Number: None

PATIENT
  Age: 81 Year
  Sex: Male
  Weight: 92.3 kg

DRUGS (12)
  1. REMDESIVIR. [Suspect]
     Active Substance: REMDESIVIR
     Indication: COVID-19
     Route: 041
     Dates: start: 20210204, end: 20210210
  2. FOLIC ACID 1 MG PO DAILY [Concomitant]
  3. PANTOPRAZOLE 40 MG IV DAILY [Concomitant]
  4. METHYLPREDNISOLONE 40 MG IV QID [Concomitant]
  5. SIMVASTATIN 20 MG PO DAILY [Concomitant]
  6. GABAPENTIN 100 MG TID [Concomitant]
  7. INSULIN GLARGINE 30 UNITS SQ DAILY [Concomitant]
  8. ENOXAPARIN 50 MG SQ BID [Concomitant]
  9. LOSARTAN 100 MG PO DAILY [Concomitant]
  10. AMLODIPINE 10 MG PO DAILY [Concomitant]
  11. DONEPEZIL 10 MG PO DAILY [Concomitant]
  12. PAROXETINE 10 MG PO DAILY [Concomitant]

REACTIONS (1)
  - Alanine aminotransferase increased [None]

NARRATIVE: CASE EVENT DATE: 20210211
